FAERS Safety Report 4296915-8 (Version None)
Quarter: 2004Q1

REPORT INFORMATION
  Report Type: 
  Country: None (occurrence: None)
  Receive Date: 20040126
  Receipt Date: 20031021
  Transmission Date: 20041129
  Serious: No
  Sender: FDA-Public Use
  Company Number: USA030330982

PATIENT
  Age: 13 Year
  Sex: Female
  Weight: 68 kg

DRUGS (4)
  1. STRATTERA [Suspect]
     Indication: ATTENTION DEFICIT/HYPERACTIVITY DISORDER
     Dosage: 80 MG/DAY
     Dates: start: 20030101
  2. RISPERDAL [Concomitant]
  3. FLUVOXAMINE MALEATE [Concomitant]
  4. PAXIL [Concomitant]

REACTIONS (1)
  - TRICHOTILLOMANIA [None]
